FAERS Safety Report 12306483 (Version 1)
Quarter: 2016Q2

REPORT INFORMATION
  Report Type: Spontaneous
  Country: US (occurrence: US)
  Receive Date: 20160426
  Receipt Date: 20160426
  Transmission Date: 20160815
  Serious: Yes (Other)
  Sender: FDA-Public Use
  Company Number: US-PFIZER INC-2016228413

PATIENT
  Sex: Male

DRUGS (2)
  1. PRAZOSIN [Concomitant]
     Active Substance: PRAZOSIN
     Dosage: UNK
  2. LATANOPROST. [Suspect]
     Active Substance: LATANOPROST
     Dosage: UNK

REACTIONS (11)
  - Visual impairment [Unknown]
  - Drug ineffective [Unknown]
  - Feeling abnormal [Unknown]
  - Bipolar disorder [Unknown]
  - Growth of eyelashes [Unknown]
  - Intentional product misuse [Unknown]
  - Pre-existing condition improved [Unknown]
  - Suicidal ideation [Unknown]
  - Therapeutic response unexpected [Unknown]
  - Post-traumatic stress disorder [Unknown]
  - Attention deficit/hyperactivity disorder [Unknown]
